FAERS Safety Report 8305351-6 (Version None)
Quarter: 2012Q2

REPORT INFORMATION
  Report Type: 
  Country: None (occurrence: None)
  Receive Date: 20120418
  Receipt Date: 20120405
  Transmission Date: 20120825
  Serious: Yes (Other)
  Sender: FDA-Public Use
  Company Number: 2012AT000151

PATIENT
  Age: 0 Day
  Sex: Female

DRUGS (2)
  1. ALPROSTADIL [Suspect]
     Indication: HYPOPLASTIC LEFT HEART SYNDROME
  2. NITROGEN, LIQUID [Concomitant]

REACTIONS (3)
  - POST PROCEDURAL COMPLICATION [None]
  - CARDIAC FAILURE CONGESTIVE [None]
  - COLLATERAL CIRCULATION [None]
